FAERS Safety Report 10229419 (Version 1)
Quarter: 2014Q2

REPORT INFORMATION
  Report Type: Spontaneous
  Country: US (occurrence: None)
  Receive Date: 20140523
  Receipt Date: 20140523
  Transmission Date: 20141212
  Serious: Yes (Other)
  Sender: FDA-Public Use
  Company Number: BR14-148-AE

PATIENT
  Age: 25 Year
  Sex: Female

DRUGS (8)
  1. NORETHINDRONE ACETATE TABLETS, USP 5 MG (AMNEAL) [Suspect]
     Indication: ENDOMETRIOSIS
     Dosage: 1 TABLET DAILY, ORAL
     Route: 048
     Dates: start: 201308
  2. CALCIUM WITH VITAMIN D [Concomitant]
  3. CODEINE [Concomitant]
  4. MULTIVITAMIN [Concomitant]
  5. VITAMIN B COMPLEX [Concomitant]
  6. MELATONIN [Concomitant]
  7. ZOLOFT [Concomitant]
  8. LUPRON DEPOT [Concomitant]

REACTIONS (5)
  - Mood altered [None]
  - Hot flush [None]
  - Fatigue [None]
  - Depression [None]
  - Muscle spasms [None]
